FAERS Safety Report 25681957 (Version 1)
Quarter: 2025Q3

REPORT INFORMATION
  Report Type: Spontaneous
  Country: EU (occurrence: EU)
  Receive Date: 20250814
  Receipt Date: 20250814
  Transmission Date: 20251021
  Serious: Yes (Life-Threatening, Hospitalization, Disabling, Other)
  Sender: ALEXION PHARMACEUTICALS
  Company Number: None

PATIENT
  Age: 81 Year
  Sex: Male
  Weight: 70 kg

DRUGS (1)
  1. ROSUVASTATIN [Suspect]
     Active Substance: ROSUVASTATIN
     Indication: Myocardial infarction
     Dosage: 40 MILLIGRAM, QD
     Route: 065
     Dates: start: 20221216, end: 20230406

REACTIONS (2)
  - Acute kidney injury [Recovered/Resolved with Sequelae]
  - Enzyme abnormality [Recovered/Resolved with Sequelae]

NARRATIVE: CASE EVENT DATE: 20230406
